FAERS Safety Report 5579125-3 (Version None)
Quarter: 2008Q1

REPORT INFORMATION
  Report Type: 
  Country: None (occurrence: None)
  Receive Date: 20080102
  Receipt Date: 20071225
  Transmission Date: 20080703
  Serious: Yes (Other)
  Sender: FDA-Public Use
  Company Number: PHHO2006JP14400

PATIENT
  Age: 75 Year
  Sex: Female
  Weight: 58 kg

DRUGS (3)
  1. DIOVAN [Suspect]
     Dosage: 80 MG, QD
     Route: 048
     Dates: start: 20040828
  2. TOWARAT [Suspect]
     Indication: HYPERTENSION
     Route: 048
     Dates: start: 20040828
  3. PRAVASTATIN SODIUM [Suspect]
     Indication: HYPERCHOLESTEROLAEMIA
     Route: 048
     Dates: start: 20040828

REACTIONS (3)
  - ABDOMINAL DISCOMFORT [None]
  - GASTRIC CANCER [None]
  - GASTROINTESTINAL ENDOSCOPIC THERAPY [None]
